FAERS Safety Report 10221487 (Version 1)
Quarter: 2014Q2

REPORT INFORMATION
  Report Type: Spontaneous
  Country: US (occurrence: None)
  Receive Date: 20140605
  Receipt Date: 20140605
  Transmission Date: 20141212
  Serious: Yes (Other)
  Sender: FDA-Public Use
  Company Number: None

PATIENT
  Age: 67 Year
  Sex: Male

DRUGS (1)
  1. LOMUSTINE [Suspect]
     Dosage: 40 MG TAKE 4 ONCE FOR 1 DOSE  ONCE  ORAL??GIVEN ONCE
     Route: 048

REACTIONS (1)
  - Convulsion [None]
